FAERS Safety Report 5071867-1 (Version None)
Quarter: 2006Q3

REPORT INFORMATION
  Report Type: 
  Country: None (occurrence: None)
  Receive Date: 20060804
  Receipt Date: 20060802
  Transmission Date: 20061208
  Serious: Yes (Other)
  Sender: FDA-Public Use
  Company Number: US-BRISTOL-MYERS SQUIBB COMPANY-13463294

PATIENT
  Age: 81 Year
  Sex: Female
  Weight: 66 kg

DRUGS (4)
  1. AVALIDE [Suspect]
     Indication: HYPERTENSION
     Route: 048
  2. SLOW FE [Interacting]
     Indication: HAEMORRHAGE
     Route: 048
     Dates: start: 20060706, end: 20060716
  3. ZEBETA [Interacting]
     Indication: HYPERTENSION
     Route: 048
  4. EVISTA [Concomitant]

REACTIONS (2)
  - DRUG INTERACTION [None]
  - OEDEMA PERIPHERAL [None]
